FAERS Safety Report 17670400 (Version 1)
Quarter: 2020Q2

REPORT INFORMATION
  Report Type: Spontaneous
  Country: EC (occurrence: EC)
  Receive Date: 20200415
  Receipt Date: 20200415
  Transmission Date: 20200713
  Serious: Yes (Other)
  Sender: FDA-Public Use
  Company Number: None

PATIENT
  Age: 45 Year
  Sex: Male
  Weight: 67 kg

DRUGS (2)
  1. COARTEM [Suspect]
     Active Substance: ARTEMETHER\LUMEFANTRINE
     Indication: MALARIA
     Route: 048
     Dates: start: 20200331, end: 20200402
  2. AZITHROMYCIN ANHYDROUS. [Suspect]
     Active Substance: AZITHROMYCIN ANHYDROUS

REACTIONS (12)
  - Tremor [None]
  - Asthenia [None]
  - Dyspnoea [None]
  - Anxiety [None]
  - Nervousness [None]
  - Salmonella test positive [None]
  - Leukopenia [None]
  - Heart rate irregular [None]
  - Pruritus [None]
  - Pain in extremity [None]
  - Headache [None]
  - Neutropenia [None]

NARRATIVE: CASE EVENT DATE: 20200408
